FAERS Safety Report 4554334-0 (Version None)
Quarter: 2005Q1

REPORT INFORMATION
  Report Type: 
  Country: None (occurrence: None)
  Receive Date: 20050118
  Receipt Date: 20050106
  Transmission Date: 20050727
  Serious: Yes (Other)
  Sender: FDA-Public Use
  Company Number: PHNU2005DE00476

PATIENT
  Sex: Female

DRUGS (2)
  1. ESTRADOT [Suspect]
     Route: 062
     Dates: start: 20031001
  2. ACTOVEGIN 10%-NACL [Concomitant]

REACTIONS (3)
  - APPLICATION SITE NECROSIS [None]
  - GANGRENE [None]
  - SECRETION DISCHARGE [None]
